FAERS Safety Report 24653016 (Version 1)
Quarter: 2024Q4

REPORT INFORMATION
  Report Type: Report from Study
  Country: CA (occurrence: CA)
  Receive Date: 20241122
  Receipt Date: 20241122
  Transmission Date: 20250114
  Serious: Yes (Hospitalization, Other)
  Sender: LUNDBECK
  Company Number: CA-LUNDBECK-DKLU4007179

PATIENT

DRUGS (1)
  1. VYEPTI [Suspect]
     Active Substance: EPTINEZUMAB-JJMR
     Indication: Migraine
     Dosage: 100 MILLIGRAM
     Route: 041
     Dates: start: 20240319

REACTIONS (6)
  - Fall [Recovering/Resolving]
  - Upper limb fracture [Recovering/Resolving]
  - Vomiting [Recovering/Resolving]
  - Arterial occlusive disease [Recovering/Resolving]
  - Internal haemorrhage [Recovered/Resolved]
  - Blood cholesterol increased [Recovering/Resolving]

NARRATIVE: CASE EVENT DATE: 20240913
